FAERS Safety Report 19362273 (Version 2)
Quarter: 2022Q4

REPORT INFORMATION
  Report Type: Spontaneous
  Country: CN (occurrence: None)
  Receive Date: 20210602
  Receipt Date: 20221103
  Transmission Date: 20230112
  Serious: Yes (Hospitalization)
  Sender: FDA-Public Use
  Company Number: CN-EISAI MEDICAL RESEARCH-EC-2021-093503

PATIENT
  Age: 27 Year
  Sex: Male
  Weight: 70 kg

DRUGS (2)
  1. RABEPRAZOLE [Suspect]
     Active Substance: RABEPRAZOLE
     Indication: Abdominal pain
     Route: 048
     Dates: start: 20210428, end: 20210504
  2. SUCRALFATE [Concomitant]
     Active Substance: SUCRALFATE
     Indication: Abdominal pain
     Route: 048
     Dates: start: 20210428, end: 20210504

REACTIONS (1)
  - Tubulointerstitial nephritis [Recovering/Resolving]

NARRATIVE: CASE EVENT DATE: 20210504
